FAERS Safety Report 4527999-7 (Version None)
Quarter: 2004Q4

REPORT INFORMATION
  Report Type: 
  Country: None (occurrence: None)
  Receive Date: 20041123
  Receipt Date: 20040422
  Transmission Date: 20050328
  Serious: Yes (Disabling)
  Sender: FDA-Public Use
  Company Number: 2004012706

PATIENT
  Age: 73 Year
  Sex: Male
  Weight: 86.637 kg

DRUGS (7)
  1. LIPITOR [Suspect]
     Indication: BLOOD CHOLESTEROL INCREASED
     Dosage: 10 MG (DAILY), ORAL
     Route: 048
  2. PRAVASTATIN [Suspect]
     Indication: BLOOD CHOLESTEROL
  3. NICOTINIC ACID [Suspect]
     Indication: HIGH DENSITY LIPOPROTEIN
  4. FINASTERIDE [Concomitant]
  5. RAMIPRIL [Concomitant]
  6. ATENOLOL [Concomitant]
  7. ASPIRIN [Concomitant]

REACTIONS (4)
  - ASTHENIA [None]
  - BLOOD CREATINE PHOSPHOKINASE INCREASED [None]
  - HIGH DENSITY LIPOPROTEIN DECREASED [None]
  - MYALGIA [None]
